FAERS Safety Report 11561743 (Version 2)
Quarter: 2015Q4

REPORT INFORMATION
  Report Type: Spontaneous
  Country: GB (occurrence: GB)
  Receive Date: 20150928
  Receipt Date: 20151012
  Transmission Date: 20160304
  Serious: Yes (Other)
  Sender: FDA-Public Use
  Company Number: GB-GLAXOSMITHKLINE-GB2015134681

PATIENT
  Sex: Female
  Weight: .61 kg

DRUGS (4)
  1. M-M-RVAXPRO [Suspect]
     Active Substance: MEASLES-MUMPS-RUBELLA VIRUS VACCINE
     Indication: IMMUNISATION
     Route: 064
     Dates: start: 20150820, end: 20150820
  2. VENTOLIN [Suspect]
     Active Substance: ALBUTEROL SULFATE
     Indication: ASTHMA
     Dosage: 200 PRN
     Route: 064
  3. FOSTAIR [Suspect]
     Active Substance: BECLOMETHASONE\FORMOTEROL
     Dosage: 100/6 1 PB
     Route: 064
  4. FOSTAIR [Suspect]
     Active Substance: BECLOMETHASONE\FORMOTEROL
     Indication: ASTHMA
     Dosage: 100/6 1 PB
     Route: 064

REACTIONS (2)
  - Foetal exposure during pregnancy [Unknown]
  - Premature baby [Unknown]
